FAERS Safety Report 22057730 (Version 1)
Quarter: 2023Q1

REPORT INFORMATION
  Report Type: Report from Study
  Country: US (occurrence: US)
  Receive Date: 20230303
  Receipt Date: 20230303
  Transmission Date: 20230417
  Serious: Yes (Hospitalization, Other)
  Sender: FDA-Public Use
  Company Number: US-JNJFOC-20230253787

PATIENT
  Sex: Female

DRUGS (1)
  1. MACITENTAN [Suspect]
     Active Substance: MACITENTAN
     Indication: Pulmonary arterial hypertension
     Route: 048
     Dates: start: 2023

REACTIONS (4)
  - Sinusitis bacterial [Recovered/Resolved]
  - Bronchitis [Recovered/Resolved]
  - Illness [Recovered/Resolved]
  - Fluid retention [Recovered/Resolved]
